FAERS Safety Report 8373620-X (Version None)
Quarter: 2012Q2

REPORT INFORMATION
  Report Type: 
  Country: None (occurrence: None)
  Receive Date: 20120521
  Receipt Date: 20120514
  Transmission Date: 20120825
  Serious: Yes (Hospitalization, Other)
  Sender: FDA-Public Use
  Company Number: US-BRISTOL-MYERS SQUIBB COMPANY-16590598

PATIENT
  Sex: Female

DRUGS (1)
  1. ERBITUX [Suspect]

REACTIONS (2)
  - PHARYNGEAL OPERATION [None]
  - MENTAL STATUS CHANGES [None]
